FAERS Safety Report 7328211-6 (Version None)
Quarter: 2011Q1

REPORT INFORMATION
  Report Type: 
  Country: None (occurrence: None)
  Receive Date: 20110303
  Receipt Date: 20110223
  Transmission Date: 20110831
  Serious: Yes (Hospitalization)
  Sender: FDA-Public Use
  Company Number: JP-JNJFOC-20101103131

PATIENT
  Sex: Female

DRUGS (13)
  1. LUPRAC [Concomitant]
     Route: 048
  2. BONOTEO [Concomitant]
     Route: 048
  3. ALEVIATIN [Concomitant]
     Route: 048
  4. ALOSENN [Concomitant]
     Route: 048
  5. CELECOX [Concomitant]
     Route: 048
  6. CEFTRIAXONE SODIUM [Concomitant]
     Route: 065
  7. MAGMITT [Concomitant]
     Route: 048
  8. GASMOTIN [Concomitant]
     Route: 048
  9. DIAZEPAM [Concomitant]
     Route: 065
  10. TOPIRAMATE [Suspect]
     Indication: EPILEPSY
     Route: 048
  11. PARIET [Concomitant]
     Route: 048
  12. WARFARIN [Concomitant]
     Route: 048
  13. ALFAROL [Concomitant]
     Route: 048

REACTIONS (1)
  - HEPATIC FUNCTION ABNORMAL [None]
